FAERS Safety Report 8125176-4 (Version None)
Quarter: 2012Q1

REPORT INFORMATION
  Report Type: 
  Country: None (occurrence: None)
  Receive Date: 20120209
  Receipt Date: 20120206
  Transmission Date: 20120608
  Serious: Yes (Other)
  Sender: FDA-Public Use
  Company Number: US-GLAXOSMITHKLINE-A0964774A

PATIENT
  Age: 80 Year
  Sex: Female

DRUGS (2)
  1. NICORETTE [Suspect]
     Indication: SMOKING CESSATION THERAPY
     Route: 002
  2. NICODERM CQ [Suspect]
     Indication: SMOKING CESSATION THERAPY
     Route: 062
     Dates: start: 20110101, end: 20110101

REACTIONS (5)
  - HALLUCINATION [None]
  - INTENTIONAL DRUG MISUSE [None]
  - ACCIDENTAL EXPOSURE [None]
  - DELUSION [None]
  - NICOTINE DEPENDENCE [None]
